FAERS Safety Report 5645447-0 (Version None)
Quarter: 2008Q1

REPORT INFORMATION
  Report Type: 
  Country: None (occurrence: None)
  Receive Date: 20080229
  Receipt Date: 20070426
  Transmission Date: 20080703
  Serious: No
  Sender: FDA-Public Use
  Company Number: US-BRISTOL-MYERS SQUIBB COMPANY-13762166

PATIENT
  Sex: Female
  Weight: 68 kg

DRUGS (3)
  1. TAXOL [Suspect]
  2. LEVOTHYROXINE SODIUM [Concomitant]
  3. PAXIL [Concomitant]

REACTIONS (3)
  - NEUROPATHY PERIPHERAL [None]
  - OEDEMA [None]
  - RASH [None]
